FAERS Safety Report 8596975-X (Version None)
Quarter: 2012Q3

REPORT INFORMATION
  Report Type: 
  Country: None (occurrence: None)
  Receive Date: 20120815
  Receipt Date: 20120808
  Transmission Date: 20120928
  Serious: Yes (Hospitalization, Other)
  Sender: FDA-Public Use
  Company Number: JP-ROCHE-GNE317177

PATIENT
  Sex: Male
  Weight: 63.067 kg

DRUGS (18)
  1. OMALIZUMAB [Suspect]
     Dosage: 300 MG,
     Route: 058
     Dates: start: 20101129
  2. PREDNISOLONE [Concomitant]
     Indication: PRODUCT USED FOR UNKNOWN INDICATION
     Dosage: UNK
     Dates: start: 20100406
  3. BEACHILON [Concomitant]
     Dates: start: 20101029, end: 20110305
  4. OMALIZUMAB [Suspect]
     Indication: ASTHMA
     Dosage: 150 MG, UNKNOWN
     Route: 058
     Dates: start: 20101018
  5. ALFACALCIDOL [Concomitant]
     Indication: PRODUCT USED FOR UNKNOWN INDICATION
     Dosage: UNK
     Dates: start: 20101029
  6. ONON [Concomitant]
     Indication: PRODUCT USED FOR UNKNOWN INDICATION
     Dosage: UNK
     Dates: start: 20070822, end: 20100405
  7. OMALIZUMAB [Suspect]
     Dosage: 150 MG, UNKNOWN
     Route: 058
     Dates: start: 20110224, end: 20110411
  8. AMLODIPINE [Concomitant]
     Indication: PRODUCT USED FOR UNKNOWN INDICATION
     Dosage: UNK
     Dates: start: 20101029, end: 20110305
  9. MONTELUKAST SODIUM [Concomitant]
     Indication: PRODUCT USED FOR UNKNOWN INDICATION
     Dosage: UNK
     Dates: start: 20100406
  10. OMALIZUMAB [Suspect]
     Dosage: 300 MG, Q2W
     Route: 058
     Dates: start: 20101116
  11. OMALIZUMAB [Suspect]
     Dosage: 300 MG,
     Route: 058
     Dates: start: 20101227
  12. OMALIZUMAB [Suspect]
     Dosage: 300 MG,
     Route: 058
     Dates: start: 20110111
  13. FLUTICASONE PROPIONATE [Concomitant]
     Indication: PRODUCT USED FOR UNKNOWN INDICATION
     Dosage: UNK
     Dates: start: 20100406
  14. OMALIZUMAB [Suspect]
     Dosage: 300 MG,
     Route: 058
     Dates: start: 20101101
  15. TULOBUTEROL HYDROCHLORIDE [Concomitant]
     Indication: PRODUCT USED FOR UNKNOWN INDICATION
     Dosage: UNK
     Dates: start: 20100406
  16. MUCODYNE [Concomitant]
     Indication: PRODUCT USED FOR UNKNOWN INDICATION
     Dosage: UNK
     Dates: start: 20101020, end: 20110118
  17. EPINASTINE HYDROCHLORIDE [Concomitant]
     Dosage: DRUG BRAND NAME HELVOTTZ
     Dates: start: 20101029, end: 20110118
  18. OMALIZUMAB [Suspect]
     Dosage: 300 MG,
     Route: 058
     Dates: start: 20101213

REACTIONS (5)
  - CARDIAC HYPERTROPHY [None]
  - CARDIAC FAILURE [None]
  - ATRIAL FIBRILLATION [None]
  - ATRIAL FLUTTER [None]
  - ARRHYTHMIA [None]
